FAERS Safety Report 10263639 (Version 1)
Quarter: 2014Q2

REPORT INFORMATION
  Report Type: Spontaneous
  Country: IT (occurrence: IT)
  Receive Date: 20140626
  Receipt Date: 20140626
  Transmission Date: 20141212
  Serious: Yes (Other)
  Sender: FDA-Public Use
  Company Number: IT-MYLANLABS-2014S1014734

PATIENT
  Age: 66 Year
  Sex: Female
  Weight: 53 kg

DRUGS (1)
  1. LETROZOLE [Suspect]
     Indication: BREAST CANCER FEMALE
     Dosage: 2.5 MG DAILY
     Route: 048
     Dates: start: 20140101, end: 20140228

REACTIONS (2)
  - Headache [Recovered/Resolved]
  - Product substitution issue [Recovered/Resolved]
